FAERS Safety Report 6976298-2 (Version None)
Quarter: 2010Q3

REPORT INFORMATION
  Report Type: 
  Country: None (occurrence: None)
  Receive Date: 20100910
  Receipt Date: 20100902
  Transmission Date: 20110219
  Serious: Yes (Hospitalization)
  Sender: FDA-Public Use
  Company Number: US-MYLANLABS-2010S1016262

PATIENT
  Age: 61 Year
  Sex: Male

DRUGS (5)
  1. METFORMIN HCL [Suspect]
     Route: 048
  2. ACTOS [Suspect]
     Route: 048
  3. JANUVIA [Suspect]
     Route: 048
  4. LIPITOR [Suspect]
     Route: 048
  5. VICTOZA [Suspect]
     Route: 048

REACTIONS (1)
  - ACUTE MYOCARDIAL INFARCTION [None]
